FAERS Safety Report 7802033-1 (Version None)
Quarter: 2011Q4

REPORT INFORMATION
  Report Type: 
  Country: None (occurrence: None)
  Receive Date: 20111005
  Receipt Date: 20110923
  Transmission Date: 20120403
  Serious: Yes (Death, Hospitalization)
  Sender: FDA-Public Use
  Company Number: GB-ACCORD-010779

PATIENT
  Age: 57 Year
  Sex: Female
  Weight: 57 kg

DRUGS (15)
  1. BISOPROLOL FUMARATE [Concomitant]
  2. SIMVASTATIN [Concomitant]
  3. URSODIOL [Concomitant]
  4. WARFARIN SODIUM [Concomitant]
  5. GEMCITABINE [Suspect]
     Indication: PANCREATIC CARCINOMA
     Dosage: 1596.00-MG/INTRAVENOUS (NOT OTHERWISE SPECIFIED)
     Route: 042
     Dates: start: 20110729, end: 20110729
  6. ZOPICLONE (ZOPICLONE) [Concomitant]
  7. DIAZEPAM [Concomitant]
  8. ISOSORBID MONONITRATE (ISOSORBIDE MONONITRATE) [Concomitant]
  9. TAZOCIN (TAZOCIN) [Suspect]
     Indication: NEUTROPENIC INFECTION
     Dosage: 4.50-G-4.00 TIMES PER-1.0DAYS/INTRAVENOUS (NOT OTHERWISE SPECIFIED)
     Route: 042
     Dates: start: 20110810
  10. IRBESARTAN (IRBESARTAN) [Concomitant]
  11. GENTAMICIN [Suspect]
     Indication: NEUTROPENIC INFECTION
     Dates: start: 20110810
  12. DOTHIEPIN HYDROCHLORIDE [Concomitant]
  13. FUROSEMIDE [Concomitant]
  14. OXYCONTIN [Concomitant]
  15. PANTOPRAZOLE [Concomitant]

REACTIONS (2)
  - TOXIC EPIDERMAL NECROLYSIS [None]
  - NEUTROPENIC SEPSIS [None]
